FAERS Safety Report 5963611-8 (Version None)
Quarter: 2008Q4

REPORT INFORMATION
  Report Type: 
  Country: None (occurrence: None)
  Receive Date: 20081124
  Receipt Date: 20081117
  Transmission Date: 20090506
  Serious: Yes (Other)
  Sender: FDA-Public Use
  Company Number: CA-BAYER-200838774NA

PATIENT
  Age: 58 Year

DRUGS (1)
  1. MAGNEVIST [Suspect]
     Indication: DRUG USE FOR UNKNOWN INDICATION
     Dosage: TOTAL DAILY DOSE: 15 ML
     Route: 042
     Dates: start: 20081117, end: 20081117

REACTIONS (3)
  - EYE SWELLING [None]
  - LIP SWELLING [None]
  - PHARYNGEAL OEDEMA [None]
